FAERS Safety Report 24981806 (Version 1)
Quarter: 2025Q1

REPORT INFORMATION
  Report Type: Spontaneous
  Country: US (occurrence: None)
  Receive Date: 20250211
  Receipt Date: 20250211
  Transmission Date: 20250408
  Serious: Yes (unspecified)
  Sender: FDA-CTU
  Company Number: None

PATIENT
  Age: 25 Year
  Sex: Female
  Weight: 55 kg

DRUGS (1)
  1. HERBALS [Suspect]
     Active Substance: HERBALS
     Indication: Antifungal treatment
     Dosage: FREQUENCY : TWICE A DAY;?OTHER ROUTE : SE APLICA SOBRE LAS U?AS;?
     Route: 050
     Dates: start: 20241202, end: 20241202

REACTIONS (1)
  - Nail discolouration [None]

NARRATIVE: CASE EVENT DATE: 20241202
